FAERS Safety Report 6026753-7 (Version None)
Quarter: 2009Q1

REPORT INFORMATION
  Report Type: 
  Country: None (occurrence: None)
  Receive Date: 20090105
  Receipt Date: 20081230
  Transmission Date: 20090719
  Serious: Yes (Other)
  Sender: FDA-Public Use
  Company Number: US-ASTRAZENECA-2007UW22351

PATIENT
  Age: 71 Year
  Sex: Female
  Weight: 70.3 kg

DRUGS (11)
  1. ARIMIDEX [Suspect]
     Indication: BREAST CANCER
     Route: 048
     Dates: start: 20050201
  2. ALLEGRA [Concomitant]
  3. SELENIUM [Concomitant]
  4. MULTIVITAMIN WITHOUT MINERALS [Concomitant]
  5. COSAMIN DS [Concomitant]
  6. CALCIUM [Concomitant]
  7. MAGNESIUM SULFATE [Concomitant]
  8. ZINC [Concomitant]
  9. ASPIRIN [Concomitant]
  10. NASONEX [Concomitant]
  11. MONOPRIL [Concomitant]

REACTIONS (7)
  - BLOOD CHOLESTEROL INCREASED [None]
  - BLOOD PRESSURE INCREASED [None]
  - HAEMATURIA [None]
  - HOT FLUSH [None]
  - HYPOTHYROIDISM [None]
  - JOINT STIFFNESS [None]
  - URINARY TRACT INFECTION [None]
